FAERS Safety Report 7210190-3 (Version None)
Quarter: 2011Q1

REPORT INFORMATION
  Report Type: 
  Country: None (occurrence: None)
  Receive Date: 20110105
  Receipt Date: 20110103
  Transmission Date: 20110831
  Serious: No
  Sender: FDA-Public Use
  Company Number: US-JNJFOC-20110100348

PATIENT
  Sex: Female

DRUGS (5)
  1. FENTANYL CITRATE [Suspect]
     Indication: ILL-DEFINED DISORDER
     Route: 062
  2. FENTANYL CITRATE [Suspect]
     Route: 062
  3. DURAGESIC-50 [Suspect]
     Route: 062
  4. DURAGESIC-50 [Suspect]
     Indication: ILL-DEFINED DISORDER
     Route: 062
  5. DURAGESIC-50 [Suspect]
     Route: 062

REACTIONS (3)
  - WRONG TECHNIQUE IN DRUG USAGE PROCESS [None]
  - APPLICATION SITE REACTION [None]
  - PRODUCT ADHESION ISSUE [None]
